FAERS Safety Report 5594821-X (Version None)
Quarter: 2008Q1

REPORT INFORMATION
  Report Type: 
  Country: None (occurrence: None)
  Receive Date: 20080117
  Receipt Date: 20080115
  Transmission Date: 20080703
  Serious: Yes (Hospitalization)
  Sender: FDA-Public Use
  Company Number: D0055824A

PATIENT
  Age: 21 Year
  Sex: Male

DRUGS (4)
  1. AUGMENTIN '125' [Suspect]
     Indication: INFECTION PROPHYLAXIS
     Route: 048
     Dates: start: 20030807, end: 20030809
  2. ALLO [Suspect]
     Route: 048
     Dates: start: 20030718, end: 20030809
  3. DIGITOXIN INJ [Concomitant]
     Route: 048
     Dates: start: 19820727, end: 20030809
  4. FUROSEMIDE + SPIRONOLACTONE [Concomitant]
     Dosage: 50MG PER DAY
     Route: 048
     Dates: start: 19970101, end: 20030809

REACTIONS (12)
  - BLISTER [None]
  - CHILLS [None]
  - CONJUNCTIVITIS [None]
  - COUGH [None]
  - GENITAL EROSION [None]
  - LIP EROSION [None]
  - ORAL MUCOSA EROSION [None]
  - PHARYNGITIS [None]
  - PYREXIA [None]
  - RASH [None]
  - RASH MACULAR [None]
  - STEVENS-JOHNSON SYNDROME [None]
